FAERS Safety Report 17131005 (Version 1)
Quarter: 2019Q4

REPORT INFORMATION
  Report Type: Spontaneous
  Country: CN (occurrence: CN)
  Receive Date: 20191209
  Receipt Date: 20191209
  Transmission Date: 20200122
  Serious: Yes (Death, Other)
  Sender: FDA-Public Use
  Company Number: NVSC2019CN061641

PATIENT
  Age: 29 Year
  Sex: Male

DRUGS (1)
  1. ACLASTA [Suspect]
     Active Substance: ZOLEDRONIC ACID
     Indication: OSTEOPOROSIS
     Dosage: 5 MG
     Route: 041
     Dates: start: 20191128

REACTIONS (2)
  - Syncope [Unknown]
  - Sudden death [Fatal]

NARRATIVE: CASE EVENT DATE: 20191129
